FAERS Safety Report 19498437 (Version 1)
Quarter: 2021Q3

REPORT INFORMATION
  Report Type: Spontaneous
  Country: CN (occurrence: CN)
  Receive Date: 20210706
  Receipt Date: 20210706
  Transmission Date: 20211014
  Serious: Yes (Hospitalization)
  Sender: FDA-Public Use
  Company Number: CN-BAXTER-2021BAX018553

PATIENT
  Age: 11 Year
  Sex: Male
  Weight: 48 kg

DRUGS (4)
  1. HOLOXAN [Suspect]
     Active Substance: IFOSFAMIDE
     Indication: OSTEOSARCOMA
     Dosage: IFOSFAMIDE 4.3 G + NS 500 ML
     Route: 041
     Dates: start: 20210510, end: 20210514
  2. UROMITEXAN [Suspect]
     Active Substance: MESNA
     Indication: CYSTITIS HAEMORRHAGIC
     Dosage: ROUTE: MICROPUMP INFUSION, MESNA INJECTION 0.86G + NS 40ML
     Route: 050
     Dates: start: 20210517
  3. 0.9% SODIUM CHLORIDE INJECTION [Suspect]
     Active Substance: SODIUM CHLORIDE
     Dosage: MESNA INJECTION 0.86G + NS 40ML , ROUTE: MICROPUMP INFUSION
     Route: 050
     Dates: start: 20210517
  4. 0.9% SODIUM CHLORIDE INJECTION [Suspect]
     Active Substance: SODIUM CHLORIDE
     Indication: MEDICATION DILUTION
     Dosage: NS 500 ML + IFOSFAMIDE 4.3 G
     Route: 041
     Dates: start: 20210510, end: 20210514

REACTIONS (2)
  - Cystitis haemorrhagic [Recovering/Resolving]
  - Myelosuppression [Recovering/Resolving]

NARRATIVE: CASE EVENT DATE: 20210516
